FAERS Safety Report 7808007-9 (Version None)
Quarter: 2011Q4

REPORT INFORMATION
  Report Type: 
  Country: None (occurrence: None)
  Receive Date: 20111011
  Receipt Date: 20111011
  Transmission Date: 20120403
  Serious: Yes (Other)
  Sender: FDA-Public Use
  Company Number: None

PATIENT

DRUGS (1)
  1. CICLOPIROX [Suspect]
     Indication: ONYCHOMYCOSIS
     Dosage: APPLY TO EFFECTED AREAS
     Route: 061
     Dates: start: 20110915, end: 20110920

REACTIONS (3)
  - APPLICATION SITE VESICLES [None]
  - APPLICATION SITE SWELLING [None]
  - REACTION TO DRUG EXCIPIENTS [None]
